FAERS Safety Report 5676025-5 (Version None)
Quarter: 2008Q1

REPORT INFORMATION
  Report Type: 
  Country: None (occurrence: None)
  Receive Date: 20080318
  Receipt Date: 20080304
  Transmission Date: 20080703
  Serious: Yes (Life-Threatening, Other)
  Sender: FDA-Public Use
  Company Number: MC200800060

PATIENT
  Sex: Female

DRUGS (5)
  1. ANGIOMAX [Suspect]
     Indication: PERCUTANEOUS CORONARY INTERVENTION
     Dosage: 0.75 MG/KG, BOLUS, INTRAVENOUS; 1.75 MG/KG, HR. INTRAVENOUS
     Route: 042
     Dates: start: 20080129, end: 20080129
  2. ANGIOMAX [Suspect]
     Indication: PERCUTANEOUS CORONARY INTERVENTION
     Dosage: 0.75 MG/KG, BOLUS, INTRAVENOUS; 1.75 MG/KG, HR. INTRAVENOUS
     Route: 042
     Dates: start: 20080129
  3. PLAVIX [Concomitant]
  4. ASPIRIN [Concomitant]
  5. HEPARIN [Concomitant]

REACTIONS (3)
  - CORONARY ARTERY DISSECTION [None]
  - THROMBOSIS IN DEVICE [None]
  - VENTRICULAR FIBRILLATION [None]
